FAERS Safety Report 5108055-6 (Version None)
Quarter: 2006Q3

REPORT INFORMATION
  Report Type: 
  Country: None (occurrence: None)
  Receive Date: 20060915
  Receipt Date: 20060907
  Transmission Date: 20061208
  Serious: Yes (Hospitalization)
  Sender: FDA-Public Use
  Company Number: FABR-11623

PATIENT
  Age: 53 Year
  Sex: Male

DRUGS (9)
  1. FABRAZYME [Suspect]
     Indication: FABRY'S DISEASE
     Dosage: 70 MG Q2WKS IV
     Route: 042
     Dates: start: 20030101
  2. MAGNESIUM OXIDE [Concomitant]
  3. PEPCID [Concomitant]
  4. MULTIVITE [Concomitant]
  5. SYNTHROID [Concomitant]
  6. TUMS [Concomitant]
  7. POTASSIUM CHLORIDE [Concomitant]
  8. LACTINEX [Concomitant]
  9. NEUTRA-PHOS [Concomitant]

REACTIONS (2)
  - RENAL FAILURE CHRONIC [None]
  - RENAL TRANSPLANT [None]
